FAERS Safety Report 11533330 (Version 1)
Quarter: 2015Q3

REPORT INFORMATION
  Report Type: Spontaneous
  Country: US (occurrence: US)
  Receive Date: 20150921
  Receipt Date: 20150921
  Transmission Date: 20151125
  Serious: No
  Sender: FDA-Public Use
  Company Number: US-ALLERGAN-1420414US

PATIENT
  Sex: Female

DRUGS (2)
  1. REFRESH [Concomitant]
     Active Substance: UNSPECIFIED INGREDIENT
     Indication: DRY EYE
  2. LASTACAFT [Suspect]
     Active Substance: ALCAFTADINE
     Indication: EYE PRURITUS
     Dosage: 1 GTT, UNK
     Route: 047
     Dates: start: 201407

REACTIONS (6)
  - Lacrimation increased [Recovering/Resolving]
  - Conjunctivitis viral [Recovered/Resolved]
  - Dry eye [Not Recovered/Not Resolved]
  - Eye pruritus [Recovering/Resolving]
  - Eye irritation [Not Recovered/Not Resolved]
  - Ocular hyperaemia [Not Recovered/Not Resolved]

NARRATIVE: CASE EVENT DATE: 201409
